FAERS Safety Report 8152831 (Version 3)
Quarter: 2013Q1

REPORT INFORMATION
  Report Type: Spontaneous
  Country: US (occurrence: US)
  Receive Date: 20110922
  Receipt Date: 20130117
  Transmission Date: 20140127
  Serious: Yes (Hospitalization, Other)
  Sender: FDA-Public Use
  Company Number: US-ASTRAZENECA-2010SE29081

PATIENT
  Age: 87 Year
  Sex: Male

DRUGS (14)
  1. NEXIUM [Suspect]
     Indication: GASTROOESOPHAGEAL REFLUX DISEASE
     Route: 048
  2. NEXIUM [Suspect]
     Indication: GASTROOESOPHAGEAL REFLUX DISEASE
     Route: 048
  3. CRESTOR [Suspect]
     Indication: HYPERLIPIDAEMIA
     Route: 048
  4. LOSARTAN [Concomitant]
     Route: 048
  5. ECOTRIN LOW STRENGTH [Concomitant]
     Route: 048
  6. LEVOTHYROXINE [Concomitant]
  7. PLAVIX [Concomitant]
     Route: 048
  8. CARVEDILOL [Concomitant]
     Route: 048
  9. BENICAR [Concomitant]
     Route: 048
  10. POTASSIUM [Concomitant]
  11. CALCIUM [Concomitant]
  12. VITAMIN C [Concomitant]
     Dosage: EVERY MORNING
     Route: 048
  13. ZANTAC [Concomitant]
  14. TUMS [Concomitant]

REACTIONS (15)
  - Prostate cancer [Unknown]
  - Pharyngeal mass [Unknown]
  - Myocardial infarction [Unknown]
  - Angina pectoris [Unknown]
  - Tooth disorder [Unknown]
  - Hypothyroidism [Unknown]
  - Hyperlipidaemia [Unknown]
  - Hypertension [Unknown]
  - Chest pain [Unknown]
  - Arteriosclerosis coronary artery [Unknown]
  - Vomiting [Unknown]
  - Dry mouth [Unknown]
  - Nausea [Unknown]
  - Intentional drug misuse [Unknown]
  - Drug ineffective [Unknown]
